FAERS Safety Report 6223830-2 (Version None)
Quarter: 2009Q2

REPORT INFORMATION
  Report Type: 
  Country: None (occurrence: None)
  Receive Date: 20090611
  Receipt Date: 20090326
  Transmission Date: 20091009
  Serious: No
  Sender: FDA-Public Use
  Company Number: US-ABBOTT-09P-163-0559676-00

PATIENT
  Sex: Male
  Weight: 77.18 kg

DRUGS (3)
  1. HUMIRA [Suspect]
     Indication: CROHN'S DISEASE
     Dosage: LOADING DOSE
     Route: 058
     Dates: start: 20090225, end: 20090225
  2. HUMIRA [Suspect]
     Route: 058
     Dates: start: 20090311, end: 20090311
  3. HUMIRA [Suspect]
     Route: 058
     Dates: start: 20090325

REACTIONS (5)
  - ARTHRALGIA [None]
  - FATIGUE [None]
  - INJECTION SITE PAIN [None]
  - OVERDOSE [None]
  - PAIN [None]
